FAERS Safety Report 17223074 (Version 2)
Quarter: 2020Q2

REPORT INFORMATION
  Report Type: Spontaneous
  Country: US (occurrence: US)
  Receive Date: 20200102
  Receipt Date: 20200406
  Transmission Date: 20200713
  Serious: Yes (Hospitalization, Other)
  Sender: FDA-Public Use
  Company Number: US-009507513-1912USA012370

PATIENT
  Age: 76 Year
  Sex: Male
  Weight: 61.9 kg

DRUGS (3)
  1. KEYTRUDA [Suspect]
     Active Substance: PEMBROLIZUMAB
     Dosage: 200 MILLIGRAM, Q3W (Q 21 DAYS); 30 MINUTES IV INFUSION
     Route: 042
  2. FLUCONAZOLE. [Concomitant]
     Active Substance: FLUCONAZOLE
     Indication: CANDIDA INFECTION
     Dosage: 10 MG/ML; 10 ML PER G TUBE DAILY
     Dates: start: 20191025
  3. AMOXICILLIN SODIUM (+) CLAVULANATE POTASSIUM [Concomitant]
     Active Substance: AMOXICILLIN\CLAVULANATE POTASSIUM
     Indication: ASPIRATION
     Dosage: 600 MG/42.9 MG/5 ML; 7.5 ML PER G TUBE/BID
     Dates: start: 20191023, end: 20191102

REACTIONS (4)
  - Pneumonia [Unknown]
  - Hypothyroidism [Unknown]
  - Hypopharyngeal cancer recurrent [Unknown]
  - Dysphagia [Unknown]

NARRATIVE: CASE EVENT DATE: 201903
